FAERS Safety Report 11545582 (Version 4)
Quarter: 2016Q3

REPORT INFORMATION
  Report Type: Spontaneous
  Country: US (occurrence: US)
  Receive Date: 20150924
  Receipt Date: 20160929
  Transmission Date: 20161109
  Serious: Yes (Hospitalization, Other)
  Sender: FDA-Public Use
  Company Number: US-PFIZER INC-2015310769

PATIENT
  Age: 63 Year
  Sex: Female

DRUGS (22)
  1. ROXICODONE [Concomitant]
     Active Substance: OXYCODONE HYDROCHLORIDE
     Indication: ARTHRALGIA
  2. SYMBICORT [Concomitant]
     Active Substance: BUDESONIDE\FORMOTEROL FUMARATE DIHYDRATE
     Dosage: 1 PUFF INHALATION TWICE A DAY
     Route: 055
  3. ALBUTEROL. [Concomitant]
     Active Substance: ALBUTEROL
     Indication: DYSPNOEA
     Dosage: 1 PUFF INHALATION 4 TIMES A DAY AS NEEDED
  4. PERCOCET [Concomitant]
     Active Substance: ACETAMINOPHEN\OXYCODONE HYDROCHLORIDE
     Dosage: 1 DF, 4X/DAY
     Route: 048
  5. VITAMIN E [Concomitant]
     Active Substance: .ALPHA.-TOCOPHEROL
     Dosage: 2 DF, 3X/DAY
     Route: 048
  6. LYRICA [Suspect]
     Active Substance: PREGABALIN
     Indication: NEUROPATHY PERIPHERAL
     Dosage: 300 MG, 2X/DAY
     Route: 048
  7. CIPROFLOXACIN. [Concomitant]
     Active Substance: CIPROFLOXACIN
     Dosage: 500 MG, 2X/DAY (EVERY 12 HOURS)
     Route: 048
  8. DICYCLOMINE [Concomitant]
     Active Substance: DICYCLOMINE HYDROCHLORIDE
     Dosage: 10 MG, 4X/DAY
     Route: 048
  9. AIRET [Concomitant]
     Dosage: 3 MLS INHALATION 4 TIMES A DAY AS NEEDED
     Route: 055
  10. LEVAQUIN [Concomitant]
     Active Substance: LEVOFLOXACIN
     Indication: BRONCHITIS
     Dosage: 750 MG, 1X/DAY
     Route: 048
  11. CODEINE PHOSPHATE W/PROMETHAZINE [Concomitant]
     Indication: NASAL CONGESTION
  12. VENTOLIN [Concomitant]
     Active Substance: ALBUTEROL SULFATE
     Indication: DYSPNOEA
     Dosage: 1 PUFF INHALATION 4 TIMES A DAY AS NEEDED
     Route: 055
  13. ZESTRIL [Concomitant]
     Active Substance: LISINOPRIL
     Dosage: 5 MG, 1X/DAY (BEFORE BREAKFAST)
     Route: 048
  14. PREDNISONE. [Concomitant]
     Active Substance: PREDNISONE
     Dosage: 10 MG, WITH FOOD
     Route: 048
  15. MYCOSTATIN [Concomitant]
     Active Substance: NYSTATIN
     Indication: FUNGAL INFECTION
     Dosage: 5 ML, 4X/DAY (EVERY 6 HOURS); SWISH AND SWALLOW
     Route: 048
  16. NEXIUM [Concomitant]
     Active Substance: ESOMEPRAZOLE MAGNESIUM
     Dosage: 40 MG, 1X/DAY (BEFORE BREAKFAST)
     Route: 048
  17. SPIRIVA [Concomitant]
     Active Substance: TIOTROPIUM BROMIDE MONOHYDRATE
     Indication: RESPIRATORY THERAPY
     Dosage: 18 ?G, 1X/DAY
     Route: 055
  18. ROXICODONE [Concomitant]
     Active Substance: OXYCODONE HYDROCHLORIDE
     Indication: BACK PAIN
     Dosage: 2 DF, 4X/DAY (EVERY 6 HOURS)
     Route: 048
  19. DELTASON [Concomitant]
     Active Substance: PREDNISONE
     Indication: CHRONIC OBSTRUCTIVE PULMONARY DISEASE
     Dosage: 20 MG, UNK
     Route: 048
  20. BENTYL [Concomitant]
     Active Substance: DICYCLOMINE HYDROCHLORIDE
     Dosage: 10 MG, 3X/DAY (BEFORE MEALS)
     Route: 048
  21. LACTOBACILLUS ACIDOPHILUS\LACTOBACILLUS BULGARICUS [Concomitant]
     Active Substance: LACTOBACILLUS ACIDOPHILUS\LACTOBACILLUS DELBRUECKII SUBSP. BULGARICUS
     Indication: DYSBACTERIOSIS
     Dosage: 1 DF, 2X/DAY
     Route: 048
  22. CODEINE PHOSPHATE W/PROMETHAZINE [Concomitant]
     Indication: COUGH
     Dosage: 5 ML, 4X/DAY (EVERY 6 HOURS)
     Route: 048

REACTIONS (6)
  - Pneumonia [Unknown]
  - Lung disorder [Unknown]
  - Chronic obstructive pulmonary disease [Not Recovered/Not Resolved]
  - Malaise [Not Recovered/Not Resolved]
  - White blood cell count decreased [Unknown]
  - Oxygen saturation decreased [Unknown]
